FAERS Safety Report 10206210 (Version 2)
Quarter: 2014Q4

REPORT INFORMATION
  Report Type: Spontaneous
  Country: US (occurrence: None)
  Receive Date: 20140527
  Receipt Date: 20141020
  Transmission Date: 20150528
  Serious: Yes (Other)
  Sender: FDA-Public Use
  Company Number: 2014P1003476

PATIENT
  Age: 22 Year
  Sex: Female
  Weight: 58.9 kg

DRUGS (2)
  1. MYORISAN [Suspect]
     Active Substance: ISOTRETINOIN
     Indication: ACNE
     Route: 048
     Dates: start: 20131118
  2. MYORISAN [Suspect]
     Active Substance: ISOTRETINOIN
     Indication: ACNE
     Route: 048
     Dates: end: 20140411

REACTIONS (12)
  - Lymphadenopathy [None]
  - Eye disorder [None]
  - Anal fissure [None]
  - Conjunctival irritation [None]
  - Neoplasm [None]
  - Painful defaecation [None]
  - Dry eye [None]
  - Haematochezia [None]
  - Eyelid irritation [None]
  - Constipation [None]
  - Mood altered [None]
  - Headache [None]

NARRATIVE: CASE EVENT DATE: 201402
